FAERS Safety Report 12947536 (Version 2)
Quarter: 2016Q4

REPORT INFORMATION
  Report Type: Spontaneous
  Country: US (occurrence: US)
  Receive Date: 20161116
  Receipt Date: 20161123
  Transmission Date: 20170207
  Serious: Yes (Other)
  Sender: FDA-Public Use
  Company Number: US-PFIZER INC-2016530448

PATIENT
  Sex: Male

DRUGS (1)
  1. CHANTIX [Suspect]
     Active Substance: VARENICLINE TARTRATE
     Dosage: UNK
     Dates: start: 2016, end: 20161107

REACTIONS (11)
  - Thinking abnormal [Unknown]
  - Abnormal behaviour [Unknown]
  - Drug dose omission [Unknown]
  - Aggression [Unknown]
  - Logorrhoea [Unknown]
  - Hypoaesthesia [Unknown]
  - Irritability [Not Recovered/Not Resolved]
  - Depressed mood [Unknown]
  - Somnolence [Unknown]
  - Agitation [Not Recovered/Not Resolved]
  - Antisocial behaviour [Not Recovered/Not Resolved]

NARRATIVE: CASE EVENT DATE: 2016
